FAERS Safety Report 7712873-5 (Version None)
Quarter: 2011Q3

REPORT INFORMATION
  Report Type: 
  Country: None (occurrence: None)
  Receive Date: 20110826
  Receipt Date: 20110817
  Transmission Date: 20111222
  Serious: Yes (Other)
  Sender: FDA-Public Use
  Company Number: PHEH2011US02411

PATIENT

DRUGS (1)
  1. VIVELLE-DOT [Suspect]
     Dosage: UNK UKN, UNK
     Route: 062

REACTIONS (1)
  - FUNGAL INFECTION [None]
